FAERS Safety Report 9119240 (Version 1)
Quarter: 2013Q1

REPORT INFORMATION
  Report Type: Spontaneous
  Country: US (occurrence: None)
  Receive Date: 20130221
  Receipt Date: 20130221
  Transmission Date: 20140127
  Serious: Yes (Hospitalization, Other)
  Sender: FDA-Public Use
  Company Number: None

PATIENT
  Age: 18 Year
  Sex: Female
  Weight: 54.43 kg

DRUGS (1)
  1. SULFAMETH/TRIMETHO 800/160 TABS SUB FOR BACTRIM DS PRIM [Suspect]
     Indication: ACNE
     Dosage: 800/160 TABS, 1 TABLET TWICE DAY, PO
     Route: 048
     Dates: start: 20120815, end: 20120924

REACTIONS (4)
  - Nervousness [None]
  - Asthenia [None]
  - Dizziness [None]
  - Nausea [None]
